FAERS Safety Report 25108827 (Version 1)
Quarter: 2025Q1

REPORT INFORMATION
  Report Type: Other
  Country: TR (occurrence: TR)
  Receive Date: 20250322
  Receipt Date: 20250322
  Transmission Date: 20250409
  Serious: Yes (Other)
  Sender: ANI
  Company Number: TR-ANIPHARMA-016094

PATIENT
  Age: 22 Year
  Sex: Female

DRUGS (10)
  1. CYCLOPHOSPHAMIDE [Suspect]
     Active Substance: CYCLOPHOSPHAMIDE
     Indication: T-cell type acute leukaemia
     Dates: start: 2017, end: 2019
  2. VINCRISTINE [Concomitant]
     Active Substance: VINCRISTINE
     Indication: T-cell type acute leukaemia
     Dates: start: 2017, end: 2019
  3. DEXAMETHASONE [Concomitant]
     Active Substance: DEXAMETHASONE
     Indication: T-cell type acute leukaemia
     Dates: start: 2017, end: 2019
  4. PREDNISOLONE [Concomitant]
     Active Substance: PREDNISOLONE
     Indication: T-cell type acute leukaemia
     Dates: start: 2017, end: 2019
  5. ASPARAGINASE [Concomitant]
     Active Substance: ASPARAGINASE
     Indication: T-cell type acute leukaemia
     Dates: start: 2017, end: 2019
  6. DAUNORUBICIN [Concomitant]
     Active Substance: DAUNORUBICIN
     Indication: T-cell type acute leukaemia
     Dates: start: 2017, end: 2019
  7. DOXORUBICIN [Concomitant]
     Active Substance: DOXORUBICIN
     Indication: T-cell type acute leukaemia
     Dates: start: 2017, end: 2019
  8. CYTARABINE [Concomitant]
     Active Substance: CYTARABINE
     Indication: T-cell type acute leukaemia
     Dates: start: 2017, end: 2019
  9. MERCAPTOPURINE [Concomitant]
     Active Substance: MERCAPTOPURINE
     Indication: T-cell type acute leukaemia
     Dates: start: 2017, end: 2019
  10. METHOTREXATE [Concomitant]
     Active Substance: METHOTREXATE
     Indication: T-cell type acute leukaemia
     Dates: start: 2017, end: 2019

REACTIONS (1)
  - Meningioma [Unknown]
